FAERS Safety Report 4714322-8 (Version None)
Quarter: 2005Q3

REPORT INFORMATION
  Report Type: 
  Country: None (occurrence: None)
  Receive Date: 20050705
  Receipt Date: 20050512
  Transmission Date: 20060218
  Serious: Yes (Disabling, Other)
  Sender: FDA-Public Use
  Company Number: 2005-0008122

PATIENT
  Age: 65 Year
  Sex: Female
  Weight: 58.0604 kg

DRUGS (10)
  1. TRUVADA [Suspect]
     Indication: HIV INFECTION
     Dosage: 1 DOSAGE FORMS, 1 IN 1 D, ORAL
     Route: 048
     Dates: start: 20050101, end: 20050228
  2. METFORMIN HCL [Suspect]
     Indication: DIABETES MELLITUS
     Dosage: 500 MG, 2 IN 1 D
     Dates: start: 20030101, end: 20050217
  3. ZOLOFT [Concomitant]
  4. ACYCLOVIR [Concomitant]
  5. AMARYL [Concomitant]
  6. ADVAIR DISKUS (SERETIDE MITE) [Concomitant]
  7. EPIVIR [Concomitant]
  8. FOSINOPRIL SODIUM [Concomitant]
  9. FOLIC ACID [Concomitant]
  10. KALETRA [Concomitant]

REACTIONS (2)
  - NEUROTOXICITY [None]
  - RENAL FAILURE [None]
